FAERS Safety Report 6459056-7 (Version None)
Quarter: 2009Q4

REPORT INFORMATION
  Report Type: 
  Country: None (occurrence: None)
  Receive Date: 20091127
  Receipt Date: 20091026
  Transmission Date: 20100525
  Serious: No
  Sender: FDA-Public Use
  Company Number: US-BAYER-200937560NA

PATIENT
  Age: 47 Year
  Sex: Female
  Weight: 70 kg

DRUGS (1)
  1. MIRENA [Suspect]
     Indication: CONTRACEPTION
     Dosage: CONTINUOUS
     Route: 015
     Dates: start: 20090917

REACTIONS (8)
  - ABDOMINAL DISTENSION [None]
  - ABDOMINAL PAIN LOWER [None]
  - FATIGUE [None]
  - HEADACHE [None]
  - POST PROCEDURAL HAEMORRHAGE [None]
  - PROCEDURAL PAIN [None]
  - VAGINAL DISCHARGE [None]
  - WEIGHT INCREASED [None]
